FAERS Safety Report 9959856 (Version 1)
Quarter: 2014Q1

REPORT INFORMATION
  Report Type: Report from Study
  Country: US (occurrence: US)
  Receive Date: 20140305
  Receipt Date: 20140305
  Transmission Date: 20141002
  Serious: No
  Sender: FDA-Public Use
  Company Number: US-ABBVIE-13P-163-1105994-00

PATIENT
  Sex: Female

DRUGS (10)
  1. HUMIRA [Suspect]
     Indication: CROHN^S DISEASE
     Route: 058
     Dates: start: 2008
  2. HUMIRA [Suspect]
     Indication: DISORDER OF ORBIT
     Route: 058
  3. HUMIRA [Suspect]
     Route: 058
  4. LYRICA [Concomitant]
     Indication: INFLAMMATION
     Dosage: 75MG DAILY
  5. HYDROCODONE [Concomitant]
     Indication: PAIN
  6. AMITRIPTYLINE [Concomitant]
     Indication: CYSTITIS INTERSTITIAL
     Dosage: AT BED TIME
  7. SERTRALINE [Concomitant]
     Indication: DEPRESSION
     Dosage: DAILY
  8. IMURAN [Concomitant]
     Indication: CROHN^S DISEASE
     Dosage: 100MG DAILY
  9. ELMIRON [Concomitant]
     Indication: BLADDER PAIN
  10. ELMIRON [Concomitant]
     Dosage: DECREASED DOSE

REACTIONS (1)
  - Crohn^s disease [Not Recovered/Not Resolved]
